FAERS Safety Report 19950039 (Version 9)
Quarter: 2022Q2

REPORT INFORMATION
  Report Type: Other
  Country: CA (occurrence: None)
  Receive Date: 20211013
  Receipt Date: 20220624
  Transmission Date: 20220721
  Serious: Yes (Other)
  Sender: FDA-Public Use
  Company Number: CA-ROCHE-2830094

PATIENT
  Age: 45 Year
  Sex: Female
  Weight: 114.4 kg

DRUGS (8)
  1. OCREVUS [Suspect]
     Active Substance: OCRELIZUMAB
     Indication: Relapsing-remitting multiple sclerosis
     Dosage: 300 MG AT DAY 0 AND 14, THEN 600 MG EVERY 6 MONTHS
     Route: 042
     Dates: start: 20201120
  2. OCREVUS [Suspect]
     Active Substance: OCRELIZUMAB
     Route: 042
  3. CITALOPRAM [Concomitant]
     Active Substance: CITALOPRAM HYDROBROMIDE
  4. BACLOFEN [Concomitant]
     Active Substance: BACLOFEN
  5. LYRICA [Concomitant]
     Active Substance: PREGABALIN
  6. INDOMETHACIN [Concomitant]
     Active Substance: INDOMETHACIN
  7. ZOPICLONE [Concomitant]
     Active Substance: ZOPICLONE
  8. AMOXICILLIN [Concomitant]
     Active Substance: AMOXICILLIN

REACTIONS (18)
  - Vision blurred [Not Recovered/Not Resolved]
  - Wound infection [Recovered/Resolved]
  - Pneumonia [Recovering/Resolving]
  - Pollakiuria [Not Recovered/Not Resolved]
  - Visual impairment [Unknown]
  - Fatigue [Not Recovered/Not Resolved]
  - Nasopharyngitis [Recovering/Resolving]
  - Cognitive disorder [Not Recovered/Not Resolved]
  - Memory impairment [Not Recovered/Not Resolved]
  - Myalgia [Not Recovered/Not Resolved]
  - Pain in extremity [Not Recovered/Not Resolved]
  - Arthralgia [Not Recovered/Not Resolved]
  - Neck pain [Not Recovered/Not Resolved]
  - Muscle tightness [Not Recovered/Not Resolved]
  - Joint range of motion decreased [Not Recovered/Not Resolved]
  - Scab [Not Recovered/Not Resolved]
  - Mass [Not Recovered/Not Resolved]
  - Dyslexia [Not Recovered/Not Resolved]

NARRATIVE: CASE EVENT DATE: 20211002
